FAERS Safety Report 7332597-6 (Version None)
Quarter: 2011Q1

REPORT INFORMATION
  Report Type: 
  Country: None (occurrence: None)
  Receive Date: 20110304
  Receipt Date: 20110224
  Transmission Date: 20110831
  Serious: Yes (Other)
  Sender: FDA-Public Use
  Company Number: US-CEPHALON-2011000906

PATIENT
  Sex: Female
  Weight: 64 kg

DRUGS (7)
  1. NUVIGIL [Suspect]
     Indication: NARCOLEPSY
     Route: 048
     Dates: end: 20110101
  2. CONCERTA [Concomitant]
  3. VENTOLIN [Concomitant]
  4. MAXZIDE [Concomitant]
  5. TEGRETOL [Concomitant]
  6. SYNTHROID [Concomitant]
  7. PROZAC [Concomitant]

REACTIONS (3)
  - DRUG PRESCRIBING ERROR [None]
  - PRURITUS [None]
  - RASH [None]
